FAERS Safety Report 5928248-5 (Version None)
Quarter: 2008Q4

REPORT INFORMATION
  Report Type: 
  Country: None (occurrence: None)
  Receive Date: 20081022
  Receipt Date: 20081022
  Transmission Date: 20090506
  Serious: Yes (Other)
  Sender: FDA-Public Use
  Company Number: None

PATIENT
  Age: 14 Year
  Sex: Female
  Weight: 68.0396 kg

DRUGS (2)
  1. PRILOSEC [Suspect]
     Indication: DYSPEPSIA
     Dosage: 20MG ONCE A DAY PO
     Route: 048
     Dates: start: 20010701, end: 20030701
  2. PREVACID [Suspect]
     Indication: DYSPEPSIA
     Dosage: 30MG ONCE A DAY PO
     Route: 048
     Dates: start: 20030701, end: 20080701

REACTIONS (6)
  - ANAEMIA [None]
  - CRYING [None]
  - DEPRESSION [None]
  - FATIGUE [None]
  - SOCIAL PHOBIA [None]
  - SOMNOLENCE [None]
